FAERS Safety Report 17912922 (Version 2)
Quarter: 2020Q2

REPORT INFORMATION
  Report Type: Spontaneous
  Country: BR (occurrence: BR)
  Receive Date: 20200618
  Receipt Date: 20200629
  Transmission Date: 20200714
  Serious: Yes (Hospitalization, Congenital Anomaly, Other)
  Sender: FDA-Public Use
  Company Number: BR-SA-2020SA154443

PATIENT

DRUGS (4)
  1. CLEXANE [Suspect]
     Active Substance: ENOXAPARIN SODIUM
     Dosage: UNK
     Route: 064
  2. FENTANYL. [Concomitant]
     Active Substance: FENTANYL
     Route: 065
  3. AAS INFANTIL [Suspect]
     Active Substance: ASPIRIN
     Dosage: UNK
     Route: 064
  4. DORMONID [MIDAZOLAM HYDROCHLORIDE] [Concomitant]
     Route: 065

REACTIONS (9)
  - Foetal exposure during pregnancy [Unknown]
  - Cleft lip [Unknown]
  - Cleft palate [Unknown]
  - Anaemia [Unknown]
  - Dyspnoea [Unknown]
  - Premature baby [Unknown]
  - Trisomy 13 [Unknown]
  - Pneumonia [Unknown]
  - Polydactyly [Unknown]
